FAERS Safety Report 7159011-8 (Version None)
Quarter: 2010Q4

REPORT INFORMATION
  Report Type: 
  Country: None (occurrence: None)
  Receive Date: 20101214
  Receipt Date: 20101203
  Transmission Date: 20110411
  Serious: Yes (Death)
  Sender: FDA-Public Use
  Company Number: PL-PFIZER INC-2010164508

PATIENT
  Age: 25 Year
  Sex: Female
  Weight: 96 kg

DRUGS (2)
  1. ZELDOX [Suspect]
     Indication: SCHIZOPHRENIA
     Dosage: 160 MG/DAY
     Dates: start: 20100401
  2. KLOZAPOL [Suspect]
     Indication: SCHIZOPHRENIA
     Dosage: 75 MG/DAY
     Dates: start: 20100401

REACTIONS (1)
  - PULMONARY EMBOLISM [None]
